FAERS Safety Report 7565654-X (Version None)
Quarter: 2011Q2

REPORT INFORMATION
  Report Type: 
  Country: None (occurrence: None)
  Receive Date: 20110616
  Receipt Date: 20110606
  Transmission Date: 20111010
  Serious: Yes (Life-Threatening, Hospitalization)
  Sender: FDA-Public Use
  Company Number: 117912

PATIENT
  Age: 57 Year
  Sex: Female

DRUGS (9)
  1. MYLOTARG [Suspect]
     Indication: ACUTE MYELOID LEUKAEMIA
     Dates: start: 20110311, end: 20110320
  2. AMBISOME [Concomitant]
  3. LORAZEPAM [Concomitant]
  4. TEICOPLANIN [Concomitant]
  5. DAUNORUBICIN HCL [Suspect]
     Indication: ACUTE MYELOID LEUKAEMIA
     Dates: start: 20110311, end: 20110320
  6. CIPROFLOXACIN HCL (CIPROFLOXACIN HCL) [Concomitant]
  7. CYTARABINE [Suspect]
     Indication: ACUTE MYELOID LEUKAEMIA
     Dates: start: 20110311, end: 20110320
  8. GENTAMICIN [Concomitant]
  9. ETOPOSIDE [Suspect]
     Indication: ACUTE MYELOID LEUKAEMIA
     Dates: start: 20110311, end: 20110320

REACTIONS (3)
  - LUNG INFILTRATION [None]
  - PNEUMONITIS [None]
  - TOXICITY TO VARIOUS AGENTS [None]
